FAERS Safety Report 5103618-6 (Version None)
Quarter: 2006Q3

REPORT INFORMATION
  Report Type: 
  Country: None (occurrence: None)
  Receive Date: 20060908
  Receipt Date: 20060622
  Transmission Date: 20061208
  Serious: Yes (Hospitalization, Other)
  Sender: FDA-Public Use
  Company Number: 2006093490

PATIENT
  Age: 36 Year
  Sex: Female
  Weight: 83.9154 kg

DRUGS (1)
  1. BEXTRA [Suspect]
     Indication: PAIN IN EXTREMITY
     Dosage: (3 IN 1 D),

REACTIONS (13)
  - DERMATITIS BULLOUS [None]
  - DRUG EXPOSURE BEFORE PREGNANCY [None]
  - EAR PAIN [None]
  - ENCEPHALOPATHY [None]
  - ERYTHEMA MULTIFORME [None]
  - MENINGITIS ASEPTIC [None]
  - MENINGITIS HERPES [None]
  - PREGNANCY [None]
  - SCAB [None]
  - SCAR [None]
  - SCARLET FEVER [None]
  - SEPTIC SHOCK [None]
  - STEVENS-JOHNSON SYNDROME [None]
